FAERS Safety Report 20177818 (Version 3)
Quarter: 2022Q2

REPORT INFORMATION
  Report Type: Spontaneous
  Country: JP (occurrence: JP)
  Receive Date: 20211213
  Receipt Date: 20220411
  Transmission Date: 20220721
  Serious: Yes (Death, Life-Threatening, Hospitalization, Other)
  Sender: FDA-Public Use
  Company Number: JP-BRISTOL-MYERS SQUIBB COMPANY-BMS-2021-132538

PATIENT
  Age: 67 Year
  Sex: Male

DRUGS (3)
  1. EMPLICITI [Suspect]
     Active Substance: ELOTUZUMAB
     Indication: Plasma cell myeloma
     Route: 041
     Dates: start: 20211025, end: 20211122
  2. REVLIMID [Suspect]
     Active Substance: LENALIDOMIDE
     Indication: Plasma cell myeloma
     Route: 048
     Dates: start: 20211025, end: 20211122
  3. DEXAMETHASONE [Suspect]
     Active Substance: DEXAMETHASONE
     Indication: Plasma cell myeloma
     Route: 065

REACTIONS (2)
  - Cerebral haemorrhage [Fatal]
  - Loss of consciousness [Unknown]

NARRATIVE: CASE EVENT DATE: 20211122
